FAERS Safety Report 7334506-2 (Version None)
Quarter: 2011Q1

REPORT INFORMATION
  Report Type: 
  Country: None (occurrence: None)
  Receive Date: 20110307
  Receipt Date: 20100909
  Transmission Date: 20110831
  Serious: Yes (Other)
  Sender: FDA-Public Use
  Company Number: US-BAYER-201012523NA

PATIENT
  Sex: Female
  Weight: 57 kg

DRUGS (5)
  1. PROMETHAZINE [Concomitant]
  2. YAZ [Suspect]
     Indication: MENORRHAGIA
     Dosage: UNK
     Dates: start: 20071106, end: 20080415
  3. YASMIN [Suspect]
     Dosage: 1 DF (DAILY DOSE), QD, ORAL
     Route: 048
  4. AZITHROMYCIN [Concomitant]
  5. YAZ [Suspect]
     Indication: PREMENSTRUAL SYNDROME

REACTIONS (15)
  - ANXIETY [None]
  - FEAR [None]
  - MOTOR DYSFUNCTION [None]
  - HYPOAESTHESIA [None]
  - SPEECH DISORDER [None]
  - HEADACHE [None]
  - PANIC ATTACK [None]
  - CEREBROVASCULAR ACCIDENT [None]
  - PAIN [None]
  - MEMORY IMPAIRMENT [None]
  - DEEP VEIN THROMBOSIS [None]
  - APHASIA [None]
  - PULMONARY EMBOLISM [None]
  - HEMIPARESIS [None]
  - CONFUSIONAL STATE [None]
